FAERS Safety Report 4948295-X (Version None)
Quarter: 2006Q1

REPORT INFORMATION
  Report Type: 
  Country: None (occurrence: None)
  Receive Date: 20060127
  Receipt Date: 20050209
  Transmission Date: 20060701
  Serious: Yes (Hospitalization, Other)
  Sender: FDA-Public Use
  Company Number: 05-02-0206

PATIENT
  Age: 50 Year
  Sex: Male

DRUGS (1)
  1. CLOZAPINE [Suspect]
     Indication: SCHIZOPHRENIA, PARANOID TYPE
     Dosage: 12.5-325MG QD, ORAL
     Route: 048
     Dates: start: 20031201, end: 20050201

REACTIONS (3)
  - HALLUCINATION [None]
  - LETHARGY [None]
  - MENTAL DISORDER DUE TO A GENERAL MEDICAL CONDITION [None]
